FAERS Safety Report 4995948-3 (Version None)
Quarter: 2006Q2

REPORT INFORMATION
  Report Type: 
  Country: None (occurrence: None)
  Receive Date: 20060508
  Receipt Date: 20050125
  Transmission Date: 20061013
  Serious: Yes (Hospitalization, Disabling)
  Sender: FDA-Public Use
  Company Number: US-MERCK-0501USA04121

PATIENT
  Age: 61 Year
  Sex: Female
  Weight: 100 kg

DRUGS (2)
  1. VIOXX [Suspect]
     Indication: ARTHRITIS
     Route: 048
     Dates: start: 20010401, end: 20040601
  2. VIOXX [Suspect]
     Route: 048
     Dates: start: 20010401, end: 20040601

REACTIONS (4)
  - BRAIN STEM HAEMORRHAGE [None]
  - CEREBROVASCULAR ACCIDENT [None]
  - HYPERTENSION [None]
  - PRESCRIBED OVERDOSE [None]
